FAERS Safety Report 7442117-3 (Version None)
Quarter: 2011Q2

REPORT INFORMATION
  Report Type: 
  Country: None (occurrence: None)
  Receive Date: 20110428
  Receipt Date: 20110415
  Transmission Date: 20111010
  Serious: Yes (Other)
  Sender: FDA-Public Use
  Company Number: PHHY2011FR34038

PATIENT
  Sex: Male

DRUGS (1)
  1. PARLODEL [Suspect]
     Dosage: 2.5 MG, QD
     Dates: start: 20100901

REACTIONS (1)
  - SEXUALLY INAPPROPRIATE BEHAVIOUR [None]
